FAERS Safety Report 8071675-3 (Version None)
Quarter: 2012Q1

REPORT INFORMATION
  Report Type: 
  Country: None (occurrence: None)
  Receive Date: 20120125
  Receipt Date: 20120110
  Transmission Date: 20120608
  Serious: Yes (Other)
  Sender: FDA-Public Use
  Company Number: US-WATSON-2012-01085

PATIENT
  Age: 42 Year
  Sex: Female

DRUGS (2)
  1. TRAMADOL HCL [Suspect]
     Indication: NEURALGIA
     Dosage: SINGLE DOSE
  2. NORTRIPTYLINE HCL [Suspect]
     Indication: NEURALGIA
     Dosage: SINGLE DOSE

REACTIONS (1)
  - SEROTONIN SYNDROME [None]
